FAERS Safety Report 5904434-5 (Version None)
Quarter: 2008Q3

REPORT INFORMATION
  Report Type: 
  Country: None (occurrence: None)
  Receive Date: 20080909
  Receipt Date: 20080312
  Transmission Date: 20090109
  Serious: Yes (Disabling)
  Sender: FDA-Public Use
  Company Number: 163-20785-07111062

PATIENT
  Age: 53 Year
  Sex: Male

DRUGS (5)
  1. THALOMID [Suspect]
     Indication: MULTIPLE MYELOMA
     Dosage: 100 MG, 1 IN 1 D, ORAL
     Route: 048
     Dates: start: 20070925, end: 20071001
  2. VELCADE [Suspect]
     Indication: MULTIPLE MYELOMA
     Dates: start: 20070801, end: 20071101
  3. DEXAMETHASONE TAB [Concomitant]
  4. ASPIRIN [Concomitant]
  5. GABAPENTIN [Concomitant]

REACTIONS (2)
  - DRUG INTOLERANCE [None]
  - NEUROPATHY PERIPHERAL [None]
